FAERS Safety Report 17657707 (Version 1)
Quarter: 2020Q2

REPORT INFORMATION
  Report Type: Spontaneous
  Country: US (occurrence: US)
  Receive Date: 20200411
  Receipt Date: 20200411
  Transmission Date: 20200713
  Serious: No
  Sender: FDA-Public Use
  Company Number: US-GLAXOSMITHKLINE-US2020060686

PATIENT
  Age: 61 Year
  Sex: Female

DRUGS (1)
  1. VOLTAREN [Suspect]
     Active Substance: DICLOFENAC SODIUM
     Indication: BACK PAIN
     Dosage: USE FOR ADAY OR TWO
     Dates: start: 2019, end: 2019

REACTIONS (5)
  - Product use in unapproved indication [Unknown]
  - Prescription drug used without a prescription [Unknown]
  - Product administered at inappropriate site [Unknown]
  - Drug effective for unapproved indication [Unknown]
  - Expired product administered [Unknown]
